FAERS Safety Report 19717171 (Version 1)
Quarter: 2021Q3

REPORT INFORMATION
  Report Type: Spontaneous
  Country: FR (occurrence: FR)
  Receive Date: 20210818
  Receipt Date: 20210818
  Transmission Date: 20211014
  Serious: Yes (Hospitalization, Other)
  Sender: FDA-Public Use
  Company Number: FR-GLAXOSMITHKLINE-FR2021170838

PATIENT
  Age: 32 Year
  Sex: Female

DRUGS (2)
  1. ZOMIGORO [Suspect]
     Active Substance: ZOLMITRIPTAN
     Indication: MIGRAINE
     Dosage: 3 DF, TOTAL (3 TABS IN TOTAL)
     Route: 048
     Dates: start: 20210430, end: 20210501
  2. LAMICTAL [Suspect]
     Active Substance: LAMOTRIGINE
     Indication: BIPOLAR DISORDER
     Dosage: 400 MG, QD
     Route: 048
     Dates: start: 20201202, end: 20210517

REACTIONS (1)
  - Reversible splenial lesion syndrome [Recovering/Resolving]

NARRATIVE: CASE EVENT DATE: 20210526
